FAERS Safety Report 15573297 (Version 2)
Quarter: 2018Q4

REPORT INFORMATION
  Report Type: Report from Study
  Country: None (occurrence: US)
  Receive Date: 20181101
  Receipt Date: 20181108
  Transmission Date: 20190205
  Serious: Yes (Death, Hospitalization)
  Sender: FDA-Public Use
  Company Number: US-ABBVIE-18K-163-2538893-00

PATIENT
  Age: 61 Year
  Sex: Female

DRUGS (3)
  1. HUMIRA [Suspect]
     Active Substance: ADALIMUMAB
     Route: 058
     Dates: start: 201809, end: 201809
  2. HUMIRA [Suspect]
     Active Substance: ADALIMUMAB
     Indication: CROHN^S DISEASE
     Route: 058
     Dates: start: 201809, end: 201809
  3. HUMIRA [Suspect]
     Active Substance: ADALIMUMAB
     Route: 058
     Dates: start: 201809, end: 201809

REACTIONS (6)
  - Septic shock [Fatal]
  - Tumour lysis syndrome [Fatal]
  - Burkitt^s lymphoma [Fatal]
  - Crohn^s disease [Fatal]
  - Intestinal perforation [Fatal]
  - Asthenia [Unknown]

NARRATIVE: CASE EVENT DATE: 2018
